FAERS Safety Report 21014342 (Version 1)
Quarter: 2022Q2

REPORT INFORMATION
  Report Type: Spontaneous
  Country: TR (occurrence: TR)
  Receive Date: 20220627
  Receipt Date: 20220627
  Transmission Date: 20220721
  Serious: Yes (Hospitalization)
  Sender: FDA-Public Use
  Company Number: TR-STRIDES ARCOLAB LIMITED-2022SP007743

PATIENT
  Age: 64 Year
  Sex: Male

DRUGS (14)
  1. CLARITHROMYCIN [Suspect]
     Active Substance: CLARITHROMYCIN
     Indication: Evidence based treatment
     Dosage: UNK
     Route: 065
     Dates: start: 2018
  2. CLARITHROMYCIN [Suspect]
     Active Substance: CLARITHROMYCIN
     Indication: Pneumonia aspiration
  3. PIPERACILLIN AND TAZOBACTAM [Suspect]
     Active Substance: PIPERACILLIN SODIUM\TAZOBACTAM SODIUM
     Indication: Evidence based treatment
     Dosage: UNK
     Route: 065
     Dates: start: 2018
  4. PIPERACILLIN AND TAZOBACTAM [Suspect]
     Active Substance: PIPERACILLIN SODIUM\TAZOBACTAM SODIUM
     Indication: Pneumonia aspiration
  5. MEROPENEM [Suspect]
     Active Substance: MEROPENEM
     Indication: Evidence based treatment
     Dosage: 1 GRAM, TID
     Route: 065
     Dates: start: 2018
  6. MEROPENEM [Suspect]
     Active Substance: MEROPENEM
     Indication: Acinetobacter infection
  7. MEROPENEM [Suspect]
     Active Substance: MEROPENEM
     Indication: Escherichia infection
  8. COLISTIN [Suspect]
     Active Substance: COLISTIN
     Indication: Evidence based treatment
     Dosage: UNK, 2X1/2/DAY
     Dates: start: 2018, end: 2018
  9. COLISTIN [Suspect]
     Active Substance: COLISTIN
     Indication: Acinetobacter infection
  10. COLISTIN [Suspect]
     Active Substance: COLISTIN
     Indication: Escherichia infection
  11. TIGECYCLINE [Suspect]
     Active Substance: TIGECYCLINE
     Indication: Evidence based treatment
     Dosage: 100 MILLIGRAM (LOADING DOSE)
     Route: 042
     Dates: start: 2018
  12. TIGECYCLINE [Suspect]
     Active Substance: TIGECYCLINE
     Indication: Acinetobacter infection
     Dosage: 50 MILLIGRAM, BID
     Route: 042
     Dates: start: 2018
  13. TIGECYCLINE [Suspect]
     Active Substance: TIGECYCLINE
     Indication: Escherichia infection
  14. ENOXAPARIN [Concomitant]
     Active Substance: ENOXAPARIN
     Indication: Ischaemic stroke
     Dosage: UNK, BID (0.6 CC)
     Route: 058
     Dates: start: 2018

REACTIONS (3)
  - Trichosporon infection [Unknown]
  - Urinary tract infection [Unknown]
  - Off label use [Unknown]

NARRATIVE: CASE EVENT DATE: 20180101
